FAERS Safety Report 8088363-X (Version None)
Quarter: 2012Q1

REPORT INFORMATION
  Report Type: 
  Country: None (occurrence: None)
  Receive Date: 20120128
  Receipt Date: 20110527
  Transmission Date: 20120608
  Serious: No
  Sender: FDA-Public Use
  Company Number: US-ABBOTT-11P-163-0729242-00

PATIENT
  Age: 81 Year
  Sex: Female

DRUGS (8)
  1. ATENOLOL [Concomitant]
     Indication: HYPERTENSION
  2. HYDROCHLOROTHIAZIDE [Concomitant]
     Indication: BLOOD PRESSURE
  3. OMEPRAZOLE [Concomitant]
     Indication: HIATUS HERNIA
  4. PREDNISONE TAB [Concomitant]
     Indication: PRODUCT USED FOR UNKNOWN INDICATION
     Dosage: TAPERING DOSE DOWN TO 10MG DAILY
  5. HUMIRA [Suspect]
     Indication: PSORIATIC ARTHROPATHY
     Dates: start: 20110521
  6. LISINOPRIL [Concomitant]
     Indication: HYPERTENSION
  7. BILOTIAZEM [Concomitant]
     Indication: HEART RATE IRREGULAR
  8. CALCIUM + VITAMIN D [Concomitant]
     Indication: SUPPLEMENTATION THERAPY

REACTIONS (1)
  - RASH MACULAR [None]
